FAERS Safety Report 23315579 (Version 1)
Quarter: 2023Q4

REPORT INFORMATION
  Report Type: Spontaneous
  Country: US (occurrence: None)
  Receive Date: 20231219
  Receipt Date: 20231219
  Transmission Date: 20240109
  Serious: Yes (Hospitalization)
  Sender: FDA-Public Use
  Company Number: None

PATIENT
  Age: 9 Month
  Sex: Male

DRUGS (3)
  1. AMBRISENTAN [Suspect]
     Active Substance: AMBRISENTAN
     Indication: Pulmonary hypertension
     Route: 048
     Dates: start: 20231207
  2. SILDENAFIL [Concomitant]
     Active Substance: SILDENAFIL
  3. TREPROSTINIL INJ [Concomitant]

REACTIONS (2)
  - Bronchiolitis [None]
  - Pyrexia [None]

NARRATIVE: CASE EVENT DATE: 20231213
